FAERS Safety Report 5512873-X (Version None)
Quarter: 2007Q4

REPORT INFORMATION
  Report Type: 
  Country: None (occurrence: None)
  Receive Date: 20071108
  Receipt Date: 20071108
  Transmission Date: 20080405
  Serious: Yes (Other)
  Sender: FDA-Public Use
  Company Number: None

PATIENT
  Sex: Female
  Weight: 61.2356 kg

DRUGS (1)
  1. LYRICA [Suspect]
     Indication: NEUROPATHY PERIPHERAL
     Dosage: 150 1 AT NIGHT 1 NIGHT. NO MORE, PLS
     Dates: start: 20071105, end: 20071106

REACTIONS (5)
  - COORDINATION ABNORMAL [None]
  - FEAR [None]
  - MALAISE [None]
  - SPEECH DISORDER [None]
  - TONGUE DISORDER [None]
